FAERS Safety Report 7576815-8 (Version None)
Quarter: 2011Q2

REPORT INFORMATION
  Report Type: 
  Country: None (occurrence: None)
  Receive Date: 20110628
  Receipt Date: 20110614
  Transmission Date: 20111010
  Serious: Yes (Hospitalization)
  Sender: FDA-Public Use
  Company Number: US-JNJFOC-20110606979

PATIENT
  Sex: Female
  Weight: 91.17 kg

DRUGS (3)
  1. METHOTREXATE [Concomitant]
     Indication: RHEUMATOID ARTHRITIS
     Dates: start: 20110101
  2. REMICADE [Suspect]
     Indication: RHEUMATOID ARTHRITIS
     Dosage: THIS IS THE INITAL INFLIXIMAB ADMINISTRATION AFTER RE-STARTING INFLIXIMAB
     Route: 042
     Dates: start: 20110610
  3. REMICADE [Suspect]
     Route: 042
     Dates: start: 20080101, end: 20100701

REACTIONS (2)
  - CEREBROVASCULAR ACCIDENT [None]
  - DRUG INEFFECTIVE [None]
